FAERS Safety Report 18974393 (Version 1)
Quarter: 2021Q1

REPORT INFORMATION
  Report Type: Spontaneous
  Country: CA (occurrence: CA)
  Receive Date: 20210305
  Receipt Date: 20210305
  Transmission Date: 20210420
  Serious: Yes (Hospitalization, Other)
  Sender: FDA-Public Use
  Company Number: CA-JNJFOC-20210247216

PATIENT
  Age: 68 Year
  Sex: Female
  Weight: 81.72 kg

DRUGS (31)
  1. CANAGLIFLOZIN [Suspect]
     Active Substance: CANAGLIFLOZIN
     Indication: TYPE 2 DIABETES MELLITUS
     Route: 048
  2. HUMALOG [Concomitant]
     Active Substance: INSULIN LISPRO
  3. CANAGLIFLOZIN [Suspect]
     Active Substance: CANAGLIFLOZIN
     Route: 048
  4. SPIRIVA [Concomitant]
     Active Substance: TIOTROPIUM BROMIDE MONOHYDRATE
  5. CANESTEN [Concomitant]
     Active Substance: CLOTRIMAZOLE
  6. CATAPRES [Concomitant]
     Active Substance: CLONIDINE HYDROCHLORIDE
  7. DIAMICRON MR [Concomitant]
     Active Substance: GLICLAZIDE
  8. EPIVAL [Concomitant]
     Active Substance: DIVALPROEX SODIUM
  9. MAVIK [Concomitant]
     Active Substance: TRANDOLAPRIL
  10. TIAZAC [Concomitant]
     Active Substance: DILTIAZEM HYDROCHLORIDE
  11. GLUCOPHAGE [Concomitant]
     Active Substance: METFORMIN HYDROCHLORIDE
  12. ISOPTIN [Concomitant]
     Active Substance: VERAPAMIL HYDROCHLORIDE
  13. JANUVIA [Concomitant]
     Active Substance: SITAGLIPTIN PHOSPHATE
  14. LIPITOR [Concomitant]
     Active Substance: ATORVASTATIN CALCIUM
  15. NORVASC [Concomitant]
     Active Substance: AMLODIPINE BESYLATE
  16. RESTORIL [Concomitant]
     Active Substance: TEMAZEPAM
  17. ABILIFY [Concomitant]
     Active Substance: ARIPIPRAZOLE
  18. CELEXA [Concomitant]
     Active Substance: CITALOPRAM HYDROBROMIDE
  19. LOZIDE [Concomitant]
     Active Substance: INDAPAMIDE
  20. APO?GLICLAZIDE [Concomitant]
     Active Substance: GLICLAZIDE
     Route: 065
  21. EZETIMIBE. [Concomitant]
     Active Substance: EZETIMIBE
  22. ASA [Concomitant]
     Active Substance: ASPIRIN
  23. METFORMIN [Concomitant]
     Active Substance: METFORMIN HYDROCHLORIDE
  24. IMODIUM [Concomitant]
     Active Substance: LOPERAMIDE HYDROCHLORIDE
  25. LOVENOX [LEVOFLOXACIN] [Concomitant]
     Active Substance: LEVOFLOXACIN
     Route: 058
  26. TRESIBA [Concomitant]
     Active Substance: INSULIN DEGLUDEC
  27. GABAPENTIN. [Concomitant]
     Active Substance: GABAPENTIN
  28. ATIVAN [Concomitant]
     Active Substance: LORAZEPAM
  29. CARDURA [Concomitant]
     Active Substance: DOXAZOSIN MESYLATE
  30. SEROQUEL [Concomitant]
     Active Substance: QUETIAPINE FUMARATE
  31. TYLENOL [Concomitant]
     Active Substance: ACETAMINOPHEN

REACTIONS (14)
  - Blister [Not Recovered/Not Resolved]
  - Peripheral swelling [Not Recovered/Not Resolved]
  - Urticaria [Not Recovered/Not Resolved]
  - Dry mouth [Not Recovered/Not Resolved]
  - Bacteraemia [Unknown]
  - Diabetic ketoacidosis [Unknown]
  - Dizziness [Not Recovered/Not Resolved]
  - Loss of personal independence in daily activities [Not Recovered/Not Resolved]
  - Diarrhoea [Unknown]
  - Vomiting [Unknown]
  - Nausea [Unknown]
  - Dyspnoea [Not Recovered/Not Resolved]
  - Fungal infection [Not Recovered/Not Resolved]
  - Asthenia [Not Recovered/Not Resolved]
